FAERS Safety Report 16585609 (Version 1)
Quarter: 2019Q3

REPORT INFORMATION
  Report Type: Spontaneous
  Country: BG (occurrence: BG)
  Receive Date: 20190717
  Receipt Date: 20190717
  Transmission Date: 20191004
  Serious: Yes (Hospitalization)
  Sender: FDA-Public Use
  Company Number: PHHY2019BG164097

PATIENT
  Age: 58 Year
  Sex: Female

DRUGS (1)
  1. METHOTREXAT [Suspect]
     Active Substance: METHOTREXATE
     Indication: MEDICATION ERROR
     Dosage: UNK
     Route: 048

REACTIONS (2)
  - Diarrhoea [Unknown]
  - Mouth injury [Unknown]

NARRATIVE: CASE EVENT DATE: 20190611
